FAERS Safety Report 8165445-5 (Version None)
Quarter: 2012Q1

REPORT INFORMATION
  Report Type: 
  Country: None (occurrence: None)
  Receive Date: 20120103
  Receipt Date: 20111010
  Transmission Date: 20120608
  Serious: No
  Sender: FDA-Public Use
  Company Number: AE-2011-002211

PATIENT
  Age: 51 Year
  Sex: Female
  Weight: 95.2554 kg

DRUGS (7)
  1. ASPIRIN [Concomitant]
  2. INCIVEK [Suspect]
     Dosage: 2250 MG (750 MG, 3 IN 1 D)
     Dates: start: 20110906
  3. MAXZIDE [Concomitant]
  4. NEXIUM [Concomitant]
  5. PAGASYS (PEGINTERFERON ALFA-2A) [Concomitant]
  6. RIBAVIRIN [Concomitant]
  7. MULTIVITAMIN [Concomitant]

REACTIONS (1)
  - DRUG DOSE OMISSION [None]
